FAERS Safety Report 5908745-9 (Version None)
Quarter: 2008Q4

REPORT INFORMATION
  Report Type: 
  Country: None (occurrence: None)
  Receive Date: 20081006
  Receipt Date: 20080926
  Transmission Date: 20090506
  Serious: Yes (Hospitalization)
  Sender: FDA-Public Use
  Company Number: B0540002A

PATIENT
  Age: 17 Year
  Sex: Male

DRUGS (5)
  1. KIVEXA [Suspect]
     Indication: HIV INFECTION
     Route: 048
     Dates: start: 20071201
  2. TELZIR [Suspect]
     Indication: HIV INFECTION
     Route: 048
     Dates: end: 20071001
  3. KALETRA [Suspect]
     Indication: HIV INFECTION
     Route: 048
     Dates: start: 20071201
  4. TRUVADA [Suspect]
     Indication: HIV INFECTION
     Route: 048
     Dates: end: 20071001
  5. RITONAVIR [Concomitant]
     Indication: HIV INFECTION
     Route: 048
     Dates: end: 20071001

REACTIONS (5)
  - BLOOD CREATININE INCREASED [None]
  - GRANULOMA [None]
  - PROTEINURIA [None]
  - RENAL FAILURE [None]
  - TUBULOINTERSTITIAL NEPHRITIS [None]
